FAERS Safety Report 18094102 (Version 2)
Quarter: 2020Q3

REPORT INFORMATION
  Report Type: Report from Study
  Country: GB (occurrence: GB)
  Receive Date: 20200730
  Receipt Date: 20200904
  Transmission Date: 20201103
  Serious: Yes (Other)
  Sender: FDA-Public Use
  Company Number: GB-IPSEN BIOPHARMACEUTICALS, INC.-2020-13372

PATIENT
  Age: 72 Year
  Sex: Female

DRUGS (1)
  1. SOMATULINE AUTOGEL [Suspect]
     Active Substance: LANREOTIDE ACETATE
     Indication: NEUROENDOCRINE TUMOUR
     Dosage: 120MG/0.5ML
     Route: 058

REACTIONS (5)
  - Deafness unilateral [Unknown]
  - Hypertension [Unknown]
  - Tinnitus [Unknown]
  - Stress [Unknown]
  - Vertigo [Unknown]

NARRATIVE: CASE EVENT DATE: 2020
